FAERS Safety Report 5068944-8 (Version None)
Quarter: 2006Q3

REPORT INFORMATION
  Report Type: 
  Country: None (occurrence: None)
  Receive Date: 20060802
  Receipt Date: 20060724
  Transmission Date: 20061208
  Serious: Yes (Hospitalization)
  Sender: FDA-Public Use
  Company Number: JP-BRISTOL-MYERS SQUIBB COMPANY-13455951

PATIENT
  Age: 74 Year
  Sex: Male

DRUGS (4)
  1. ZERIT [Suspect]
     Route: 048
     Dates: start: 20020405, end: 20050516
  2. EPIVIR [Suspect]
     Dosage: THERAPY STOPPED ON 16-MAY-2005 AND RESTARTED 02-JUN-2005.
     Route: 048
     Dates: start: 20000926
  3. VIRAMUNE [Suspect]
     Dosage: THERAPY STOPPED ON 16-MAY-2005 AND RESTARTED ON 02-JUN-2005.
     Route: 048
     Dates: start: 20000926
  4. RETROVIR [Concomitant]
     Route: 048
     Dates: start: 20050602

REACTIONS (1)
  - DEPRESSION [None]
